FAERS Safety Report 5304268-9 (Version None)
Quarter: 2007Q2

REPORT INFORMATION
  Report Type: 
  Country: None (occurrence: None)
  Receive Date: 20070423
  Receipt Date: 20070418
  Transmission Date: 20071010
  Serious: Yes (Other)
  Sender: FDA-Public Use
  Company Number: US-BAYER-200711179BCC

PATIENT
  Age: 28 Year
  Sex: Female
  Weight: 55 kg

DRUGS (1)
  1. MIDOL [Suspect]
     Indication: DYSMENORRHOEA
     Dosage: AS USED: 500/15/60 MG  UNIT DOSE: 500 MG
     Route: 048
     Dates: start: 20070219

REACTIONS (4)
  - ARTHRALGIA [None]
  - DYSSTASIA [None]
  - NON-CARDIAC CHEST PAIN [None]
  - RASH GENERALISED [None]
